FAERS Safety Report 7009860 (Version 2)
Quarter: 2014Q3

REPORT INFORMATION
  Report Type: Spontaneous
  Country: US (occurrence: None)
  Receive Date: 20090522
  Receipt Date: 20140926
  Transmission Date: 20150326
  Serious: Yes (Other)
  Sender: FDA-Public Use
  Company Number: 2009S1003998

PATIENT
  Age: 62 Year
  Sex: Female
  Weight: 65 kg

DRUGS (7)
  1. ACTOS [Concomitant]
     Active Substance: PIOGLITAZONE HYDROCHLORIDE
  2. SYNTHROID [Concomitant]
     Active Substance: LEVOTHYROXINE SODIUM
  3. PRAVACHOL (PRAVASTATIN SODIUM) [Concomitant]
  4. GEMFIBROZIL. [Concomitant]
     Active Substance: GEMFIBROZIL
  5. VASOTEC (ENALAPRIL MALEATE) [Concomitant]
  6. PHOSPHO-SODA [Suspect]
     Active Substance: SODIUM PHOSPHATE, DIBASIC\SODIUM PHOSPHATE, MONOBASIC
     Indication: COLONOSCOPY
     Dosage: PO
     Route: 048
     Dates: start: 20060820
  7. TRAZODONE [Concomitant]
     Active Substance: TRAZODONE HYDROCHLORIDE

REACTIONS (14)
  - Cardiac failure congestive [None]
  - Nephrogenic anaemia [None]
  - Nausea [None]
  - Hydronephrosis [None]
  - Pyelonephritis [None]
  - Coronary artery disease [None]
  - Renal failure chronic [None]
  - Nephrolithiasis [None]
  - Nephrocalcinosis [None]
  - Renal tubular necrosis [None]
  - Hyperparathyroidism secondary [None]
  - Procedural hypotension [None]
  - Renal cyst [None]
  - Renal failure acute [None]

NARRATIVE: CASE EVENT DATE: 20060918
